FAERS Safety Report 14259262 (Version 2)
Quarter: 2018Q2

REPORT INFORMATION
  Report Type: Not Available
  Country: US (occurrence: US)
  Receive Date: 20171207
  Receipt Date: 20180502
  Transmission Date: 20180711
  Serious: Yes (Hospitalization)
  Sender: FDA-Public Use
  Company Number: US-NEUROCRINE BIOSCIENCES INC.-2017NBI01696

PATIENT
  Sex: Male

DRUGS (30)
  1. INGREZZA [Suspect]
     Active Substance: VALBENAZINE
     Route: 048
     Dates: start: 20171003
  2. DILTIAZEM CD [Concomitant]
     Active Substance: DILTIAZEM
  3. TRIUMEQ [Concomitant]
     Active Substance: ABACAVIR SULFATE\DOLUTEGRAVIR SODIUM\LAMIVUDINE
  4. METANX [Concomitant]
     Active Substance: LEVOMEFOLATE CALCIUM\METHYLCOBALAMIN\PYRIDOXAL PHOSPHATE ANHYDROUS
  5. AMBIEN [Concomitant]
     Active Substance: ZOLPIDEM TARTRATE
  6. CLONAZEPAM. [Concomitant]
     Active Substance: CLONAZEPAM
  7. PROCRIT [Concomitant]
     Active Substance: ERYTHROPOIETIN
  8. MORPHINE [Concomitant]
     Active Substance: MORPHINE
  9. PROCTOZONE-HC [Concomitant]
     Active Substance: HYDROCORTISONE
  10. BISCOLAX [Concomitant]
     Active Substance: BISACODYL
  11. TYLENOL [Concomitant]
     Active Substance: ACETAMINOPHEN
  12. GLUCAGON EMERGENCY [Concomitant]
  13. MILK OF MAGNESIA [Concomitant]
     Active Substance: MAGNESIUM HYDROXIDE
  14. ROBAFEN DM [Concomitant]
  15. IRON [Concomitant]
     Active Substance: IRON
  16. ZOFRAN [Concomitant]
     Active Substance: ONDANSETRON HYDROCHLORIDE
  17. HALOPERIDOL. [Concomitant]
     Active Substance: HALOPERIDOL
  18. TRAZODONE [Concomitant]
     Active Substance: TRAZODONE HYDROCHLORIDE
  19. INGREZZA [Suspect]
     Active Substance: VALBENAZINE
     Indication: TARDIVE DYSKINESIA
     Route: 048
     Dates: start: 20170925, end: 20171002
  20. ATORVASTATIN [Concomitant]
     Active Substance: ATORVASTATIN
  21. ZYRTEC [Concomitant]
     Active Substance: CETIRIZINE HYDROCHLORIDE
  22. XARELTO [Concomitant]
     Active Substance: RIVAROXABAN
  23. FAMOTIDINE. [Concomitant]
     Active Substance: FAMOTIDINE
  24. FLORASTOR [Concomitant]
     Active Substance: SACCHAROMYCES CEREVISIAE
  25. DULOXETINE. [Concomitant]
     Active Substance: DULOXETINE
  26. FISH OIL [Concomitant]
     Active Substance: FISH OIL
  27. OMEPRAZOLE. [Concomitant]
     Active Substance: OMEPRAZOLE
  28. VITAMIN D3 [Concomitant]
     Active Substance: CHOLECALCIFEROL
  29. THERAGRAN-M [Concomitant]
     Active Substance: VITAMINS
  30. FLECTOR [Concomitant]
     Active Substance: DICLOFENAC EPOLAMINE

REACTIONS (3)
  - Osteoarthritis [Unknown]
  - Renal cyst [Unknown]
  - Osteomyelitis [Unknown]
